FAERS Safety Report 8096717-0 (Version None)
Quarter: 2012Q1

REPORT INFORMATION
  Report Type: 
  Country: None (occurrence: None)
  Receive Date: 20120129
  Receipt Date: 20111212
  Transmission Date: 20120608
  Serious: No
  Sender: FDA-Public Use
  Company Number: US-ABBOTT-11P-163-0874729-00

PATIENT
  Age: 44 Year
  Sex: Female

DRUGS (2)
  1. HUMIRA [Suspect]
     Indication: PSORIASIS
     Dates: start: 20110909, end: 20111121
  2. HUMIRA [Suspect]

REACTIONS (3)
  - DRUG HYPERSENSITIVITY [None]
  - FOLLICULITIS [None]
  - PSORIASIS [None]
